FAERS Safety Report 6666896-8 (Version None)
Quarter: 2010Q2

REPORT INFORMATION
  Report Type: 
  Country: None (occurrence: None)
  Receive Date: 20100402
  Receipt Date: 20100402
  Transmission Date: 20101027
  Serious: Yes (Hospitalization)
  Sender: FDA-Public Use
  Company Number: None

PATIENT
  Age: 20 Year
  Sex: Male

DRUGS (1)
  1. PENICILLIN [Suspect]

REACTIONS (3)
  - DYSPNOEA [None]
  - RASH [None]
  - THROAT TIGHTNESS [None]
